FAERS Safety Report 5740665-5 (Version None)
Quarter: 2008Q2

REPORT INFORMATION
  Report Type: 
  Country: None (occurrence: None)
  Receive Date: 20080516
  Receipt Date: 20080513
  Transmission Date: 20081010
  Serious: Yes (Life-Threatening, Hospitalization, Other)
  Sender: FDA-Public Use
  Company Number: FR-WYE-G01528808

PATIENT
  Sex: Female

DRUGS (6)
  1. RAPAMUNE [Suspect]
     Indication: PROPHYLAXIS AGAINST TRANSPLANT REJECTION
     Dosage: 3 MG TOTAL DAILY
     Route: 048
     Dates: start: 20011001, end: 20080214
  2. RAPAMUNE [Suspect]
     Dosage: 2 MG TOTAL DAILY
     Route: 048
     Dates: start: 20080215
  3. SOLUPRED [Suspect]
     Route: 048
     Dates: end: 20080214
  4. SOLUPRED [Suspect]
     Route: 048
     Dates: start: 20080215
  5. TRIFLUCAN [Concomitant]
     Indication: CRYPTOCOCCOSIS
     Route: 048
     Dates: start: 20050101
  6. IMUREL [Suspect]
     Route: 048
     Dates: start: 20011001, end: 20080215

REACTIONS (1)
  - METASTATIC SQUAMOUS CELL CARCINOMA [None]
